FAERS Safety Report 4865490-9 (Version None)
Quarter: 2005Q4

REPORT INFORMATION
  Report Type: 
  Country: None (occurrence: None)
  Receive Date: 20051223
  Receipt Date: 20050915
  Transmission Date: 20060501
  Serious: Yes (Life-Threatening, Hospitalization)
  Sender: FDA-Public Use
  Company Number: JP-ROCHE-419555

PATIENT
  Age: 68 Year
  Sex: Female

DRUGS (2)
  1. TAMIFLU [Suspect]
     Route: 048
     Dates: start: 20050422, end: 20050425
  2. ROPION [Concomitant]
     Route: 042
     Dates: start: 20050425, end: 20050427

REACTIONS (14)
  - BLOOD PRESSURE DECREASED [None]
  - DEHYDRATION [None]
  - DRUG INEFFECTIVE [None]
  - GASTRIC ULCER [None]
  - HYPERTENSION [None]
  - LARYNGITIS [None]
  - LYMPHOCYTE STIMULATION TEST POSITIVE [None]
  - NEPHRITIS INTERSTITIAL [None]
  - OEDEMA MOUTH [None]
  - PHARYNGEAL OEDEMA [None]
  - RASH [None]
  - RENAL FAILURE ACUTE [None]
  - RENAL FAILURE CHRONIC [None]
  - SEPTIC SHOCK [None]
